FAERS Safety Report 13702091 (Version 1)
Quarter: 2017Q2

REPORT INFORMATION
  Report Type: Spontaneous
  Country: US (occurrence: US)
  Receive Date: 20170629
  Receipt Date: 20170629
  Transmission Date: 20170830
  Serious: No
  Sender: FDA-Public Use
  Company Number: US-JNJFOC-20161204857

PATIENT
  Age: 69 Year
  Sex: Female
  Weight: 77.11 kg

DRUGS (9)
  1. TYLENOL EXTRA STRENGTH [Concomitant]
     Active Substance: ACETAMINOPHEN
     Indication: HEADACHE
     Dosage: 1000MG/CAPLETS/ 500MG/AS NEEDED
     Route: 065
     Dates: start: 2016
  2. KETOCONAZOLE 2% [Suspect]
     Active Substance: KETOCONAZOLE
     Indication: DANDRUFF
     Dosage: ON AN UNSPECIFIED DATE IN BEGINNING OF NOVEMBER
     Route: 061
     Dates: start: 201611, end: 2016
  3. MELOXICAM. [Concomitant]
     Active Substance: MELOXICAM
     Indication: ARTHRALGIA
     Route: 065
     Dates: start: 2016
  4. KETOCONAZOLE 2% [Suspect]
     Active Substance: KETOCONAZOLE
     Indication: DANDRUFF
     Dosage: ON AN UNSPECIFIED DATE IN BEGINNING OF NOVEMBER
     Route: 061
     Dates: start: 2016
  5. TYLENOL EXTRA STRENGTH [Concomitant]
     Active Substance: ACETAMINOPHEN
     Indication: PAIN
     Dosage: 1000MG/CAPLETS/ 500MG/AS NEEDED
     Route: 065
     Dates: start: 2016
  6. KETOCONAZOLE 2% [Suspect]
     Active Substance: KETOCONAZOLE
     Indication: FUNGAL INFECTION
     Dosage: ON AN UNSPECIFIED DATE IN BEGINNING OF NOVEMBER
     Route: 061
     Dates: start: 2016
  7. KETOCONAZOLE 2% [Suspect]
     Active Substance: KETOCONAZOLE
     Indication: FUNGAL INFECTION
     Dosage: ON AN UNSPECIFIED DATE IN BEGINNING OF NOVEMBER
     Route: 061
     Dates: start: 201611, end: 2016
  8. SIMVASTATIN. [Concomitant]
     Active Substance: SIMVASTATIN
     Indication: BLOOD CHOLESTEROL
     Route: 065
     Dates: start: 2006
  9. VITAMIN D [Concomitant]
     Active Substance: CHOLECALCIFEROL
     Route: 065

REACTIONS (1)
  - Hair texture abnormal [Not Recovered/Not Resolved]

NARRATIVE: CASE EVENT DATE: 201611
